FAERS Safety Report 5565445-5 (Version None)
Quarter: 2007Q4

REPORT INFORMATION
  Report Type: 
  Country: None (occurrence: None)
  Receive Date: 20071218
  Receipt Date: 20071206
  Transmission Date: 20080405
  Serious: Yes (Other)
  Sender: FDA-Public Use
  Company Number: US-PFIZER INC-2007082350

PATIENT
  Sex: Female

DRUGS (4)
  1. LYRICA [Suspect]
     Indication: BACK PAIN
     Dates: start: 20070901, end: 20070901
  2. OXYCONTIN [Concomitant]
  3. OXYCODONE HCL [Concomitant]
  4. VERAPAMIL [Concomitant]

REACTIONS (6)
  - HYPERSENSITIVITY [None]
  - SWELLING [None]
  - VENOUS OCCLUSION [None]
  - VISION BLURRED [None]
  - VISUAL FIELD DEFECT [None]
  - WEIGHT INCREASED [None]
